FAERS Safety Report 9128723 (Version 5)
Quarter: 2014Q1

REPORT INFORMATION
  Report Type: Spontaneous
  Country: US (occurrence: US)
  Receive Date: 20130228
  Receipt Date: 20140219
  Transmission Date: 20141002
  Serious: Yes (Other)
  Sender: FDA-Public Use
  Company Number: US-AMGEN-USASP2013012038

PATIENT
  Age: 35 Year
  Sex: Female
  Weight: 81.63 kg

DRUGS (6)
  1. NPLATE [Suspect]
     Indication: IMMUNE THROMBOCYTOPENIC PURPURA
     Dosage: 800 MUG, QWK
     Route: 058
     Dates: start: 20111229
  2. POTASSIUM [Concomitant]
  3. HYDROCHLOROTHIAZIDE [Concomitant]
  4. KLONOPIN [Concomitant]
  5. PHENTERMINE [Concomitant]
  6. CYCLOSPORIN [Concomitant]
     Dosage: 200 MG, BID
     Route: 048

REACTIONS (2)
  - Platelet count decreased [Unknown]
  - Therapeutic response decreased [Unknown]
